FAERS Safety Report 9682484 (Version 1)
Quarter: 2013Q4

REPORT INFORMATION
  Report Type: Spontaneous
  Country: BE (occurrence: BE)
  Receive Date: 20131112
  Receipt Date: 20131112
  Transmission Date: 20140711
  Serious: Yes (Hospitalization)
  Sender: FDA-Public Use
  Company Number: BE-JNJFOC-20131101470

PATIENT
  Age: 68 Year
  Sex: Male

DRUGS (11)
  1. NIZORAL [Suspect]
     Indication: FUNGAL INFECTION
     Dosage: FOR 13 DAYS
     Route: 048
     Dates: end: 2013
  2. LEDERTREXATE /00113801/ [Suspect]
     Indication: EX-TOBACCO USER
     Dosage: 3 MONTHS
     Route: 065
     Dates: end: 2013
  3. ALENDRONATE [Concomitant]
     Indication: OSTEOPOROSIS
     Route: 048
  4. PREDNISOLONE [Concomitant]
     Indication: POLYMYOSITIS
     Route: 065
  5. PREDNISOLONE [Concomitant]
     Indication: POLYMYOSITIS
     Route: 065
  6. FOLIC ACID [Concomitant]
     Indication: EX-TOBACCO USER
     Route: 048
  7. CACIT VITAMINE D3 [Concomitant]
     Indication: OSTEOPOROSIS
     Dosage: 1000/88
     Route: 048
  8. CARDIOASPIRINE [Concomitant]
     Indication: HYPERTENSION
     Route: 048
  9. CORUNO [Concomitant]
     Indication: HYPERTENSION
     Route: 048
  10. EMCONCOR [Concomitant]
     Indication: HYPERTENSION
     Route: 048
  11. ALDACTONE [Concomitant]
     Indication: HYPERTENSION
     Route: 048

REACTIONS (7)
  - Bundle branch block [Unknown]
  - Atrioventricular block first degree [Unknown]
  - Hepatitis toxic [Unknown]
  - Abdominal pain upper [Recovering/Resolving]
  - Jaundice [Recovering/Resolving]
  - Pain in extremity [Unknown]
  - Back pain [Unknown]
